FAERS Safety Report 10878829 (Version 2)
Quarter: 2015Q2

REPORT INFORMATION
  Report Type: Report from Study
  Country: PL (occurrence: PL)
  Receive Date: 20150302
  Receipt Date: 20150413
  Transmission Date: 20150821
  Serious: Yes (Other)
  Sender: FDA-Public Use
  Company Number: PL-BAYER-2015-028808

PATIENT
  Sex: Male

DRUGS (1)
  1. BETAFERON [Suspect]
     Active Substance: INTERFERON BETA-1B
     Indication: MULTIPLE SCLEROSIS
     Dosage: UNK
     Route: 058
     Dates: start: 20120210, end: 20150311

REACTIONS (3)
  - Drug ineffective [None]
  - Multiple sclerosis [None]
  - Expanded disability status scale score increased [None]
